FAERS Safety Report 6969104-3 (Version None)
Quarter: 2010Q3

REPORT INFORMATION
  Report Type: 
  Country: None (occurrence: None)
  Receive Date: 20100907
  Receipt Date: 20100831
  Transmission Date: 20110219
  Serious: Yes (Other)
  Sender: FDA-Public Use
  Company Number: DK-CUBIST-2010S1001345

PATIENT
  Age: 75 Year
  Sex: Male

DRUGS (4)
  1. CUBICIN [Suspect]
     Indication: ENDOCARDITIS ENTEROCOCCAL
     Route: 042
  2. CEFTRIAXONE [Suspect]
     Indication: ENDOCARDITIS ENTEROCOCCAL
     Route: 042
  3. CIPROFLOXACIN [Concomitant]
     Indication: PRODUCT USED FOR UNKNOWN INDICATION
  4. RIFAMPICIN [Concomitant]
     Indication: PRODUCT USED FOR UNKNOWN INDICATION

REACTIONS (1)
  - ORGANISING PNEUMONIA [None]
